FAERS Safety Report 16877586 (Version 1)
Quarter: 2019Q4

REPORT INFORMATION
  Report Type: Spontaneous
  Country: US (occurrence: US)
  Receive Date: 20191002
  Receipt Date: 20191002
  Transmission Date: 20200122
  Serious: No
  Sender: FDA-Public Use
  Company Number: None

PATIENT
  Age: 26 Year
  Sex: Female
  Weight: 69.75 kg

DRUGS (2)
  1. CLINIQUE ACNE SOLUTIONS CLINICAL CLEARING GEL (SALICYLIC ACID) [Suspect]
     Active Substance: SALICYLIC ACID
     Indication: ACNE
     Dates: start: 20190216, end: 20190216
  2. PRENATALS [Concomitant]

REACTIONS (4)
  - Scab [None]
  - Scar [None]
  - Application site pain [None]
  - Skin exfoliation [None]

NARRATIVE: CASE EVENT DATE: 20190216
